FAERS Safety Report 24370755 (Version 1)
Quarter: 2024Q3

REPORT INFORMATION
  Report Type: Spontaneous
  Country: FR (occurrence: FR)
  Receive Date: 20240927
  Receipt Date: 20240927
  Transmission Date: 20241017
  Serious: Yes (Other)
  Sender: AUROBINDO
  Company Number: FR-AFSSAPS-MA2024001399

PATIENT
  Age: 36 Year
  Sex: Female

DRUGS (2)
  1. AMOXICILLIN [Suspect]
     Active Substance: AMOXICILLIN
     Indication: Tonsillitis
     Dosage: UNK
     Route: 065
  2. CLARITHROMYCIN [Suspect]
     Active Substance: CLARITHROMYCIN
     Indication: Tonsillitis
     Dosage: 1 GRAM 1TOTAL
     Route: 048
     Dates: start: 20240803

REACTIONS (3)
  - Urinary retention [Recovered/Resolved]
  - Dysgeusia [Recovered/Resolved]
  - Wrong product administered [Recovered/Resolved]

NARRATIVE: CASE EVENT DATE: 20240804
